FAERS Safety Report 15253013 (Version 2)
Quarter: 2019Q4

REPORT INFORMATION
  Report Type: Spontaneous
  Country: US (occurrence: US)
  Receive Date: 20180807
  Receipt Date: 20191105
  Transmission Date: 20200122
  Serious: No
  Sender: FDA-Public Use
  Company Number: US-RADIUS HEALTH INC.-2018US001461

PATIENT
  Sex: Female

DRUGS (1)
  1. TYMLOS [Suspect]
     Active Substance: ABALOPARATIDE
     Indication: OSTEOPOROSIS POSTMENOPAUSAL
     Dosage: 80 MCG, UNK
     Route: 058
     Dates: start: 201811, end: 20190430

REACTIONS (8)
  - Weight increased [Recovered/Resolved]
  - Heart rate increased [Recovered/Resolved]
  - Panic attack [Recovered/Resolved]
  - Feeling abnormal [Unknown]
  - Hair texture abnormal [Recovering/Resolving]
  - Product administered at inappropriate site [Recovered/Resolved]
  - Fatigue [Recovered/Resolved]
  - Dizziness [Recovered/Resolved]
